FAERS Safety Report 24680089 (Version 1)
Quarter: 2024Q4

REPORT INFORMATION
  Report Type: Spontaneous
  Country: US (occurrence: US)
  Receive Date: 20241129
  Receipt Date: 20241129
  Transmission Date: 20250114
  Serious: Yes (Hospitalization, Other)
  Sender: AMGEN
  Company Number: US-AMGEN-USASP2024232561

PATIENT
  Age: 62 Year
  Sex: Female

DRUGS (1)
  1. PREDNISONE [Suspect]
     Active Substance: PREDNISONE
     Indication: Vertigo positional
     Dosage: 60 MILLIGRAM, TAPER
     Route: 065

REACTIONS (7)
  - Vertigo positional [Unknown]
  - CSF lymphocyte count increased [Unknown]
  - CSF protein increased [Unknown]
  - Metastatic neoplasm [Unknown]
  - Encephalitis brain stem [Unknown]
  - IVth nerve paralysis [Unknown]
  - Off label use [Unknown]
